FAERS Safety Report 4769830-0 (Version None)
Quarter: 2005Q3

REPORT INFORMATION
  Report Type: 
  Country: None (occurrence: None)
  Receive Date: 20050915
  Receipt Date: 20050901
  Transmission Date: 20060218
  Serious: Yes (Hospitalization)
  Sender: FDA-Public Use
  Company Number: DE-BRISTOL-MYERS SQUIBB COMPANY-13104690

PATIENT
  Age: 61 Year
  Sex: Male

DRUGS (1)
  1. ERBITUX [Suspect]
     Indication: COLORECTAL CANCER METASTATIC
     Route: 041
     Dates: start: 20050830

REACTIONS (1)
  - ANGINA PECTORIS [None]
